FAERS Safety Report 21583883 (Version 2)
Quarter: 2022Q4

REPORT INFORMATION
  Report Type: Spontaneous
  Country: DE (occurrence: DE)
  Receive Date: 20221111
  Receipt Date: 20221127
  Transmission Date: 20230112
  Serious: Yes (Other)
  Sender: FDA-Public Use
  Company Number: DE-ROCHE-3205259

PATIENT
  Age: 42 Year
  Sex: Male

DRUGS (14)
  1. BENDAMUSTINE HYDROCHLORIDE [Suspect]
     Active Substance: BENDAMUSTINE HYDROCHLORIDE
     Indication: Diffuse large B-cell lymphoma
     Dosage: (A DAY) (FIFTH LINE WITH RITUXIMAB AND POLATUZUMAB)
     Route: 042
     Dates: start: 202206, end: 202206
  2. TACROLIMUS [Suspect]
     Active Substance: TACROLIMUS
     Indication: Prophylaxis against graft versus host disease
     Route: 065
     Dates: start: 20220804, end: 20220830
  3. BUSULFAN [Suspect]
     Active Substance: BUSULFAN
     Indication: Diffuse large B-cell lymphoma
     Route: 065
     Dates: start: 20220804, end: 20220830
  4. FLUDARABINE [Suspect]
     Active Substance: FLUDARABINE PHOSPHATE
     Indication: Diffuse large B-cell lymphoma
     Route: 065
     Dates: start: 20220804, end: 20220830
  5. POLATUZUMAB VEDOTIN [Suspect]
     Active Substance: POLATUZUMAB VEDOTIN
     Indication: Diffuse large B-cell lymphoma
     Dosage: (FIFTH LINE WITH RITUXIMAB AND BENDAMUSTINE HYDROCHLORIDE)
     Route: 065
     Dates: start: 202206, end: 202206
  6. RITUXIMAB [Suspect]
     Active Substance: RITUXIMAB
     Indication: Diffuse large B-cell lymphoma
     Dosage: (FIRST LINE WITH CHOP)
     Route: 065
     Dates: start: 20210301, end: 20210901
  7. RITUXIMAB [Suspect]
     Active Substance: RITUXIMAB
     Dosage: (SECOND LINE WITH ICE)
     Route: 065
     Dates: start: 20211208, end: 20220101
  8. RITUXIMAB [Suspect]
     Active Substance: RITUXIMAB
     Dosage: (THIRD LINE WITH DHAP)
     Route: 065
     Dates: start: 20220101, end: 20220130
  9. RITUXIMAB [Suspect]
     Active Substance: RITUXIMAB
     Dosage: (FIFTH LINE WITH POLATUZUMAB AND BENDAMUSTINE HYDROCHLORIDE)
     Route: 065
     Dates: start: 202206, end: 202206
  10. CISPLATIN\CYTARABINE\DEXAMETHASONE [Suspect]
     Active Substance: CISPLATIN\CYTARABINE\DEXAMETHASONE
     Indication: Diffuse large B-cell lymphoma
     Dosage: (THIRD LINE WITH RITUXIMAB)
     Route: 065
     Dates: start: 20220101, end: 20220130
  11. MYFORTIC [Suspect]
     Active Substance: MYCOPHENOLATE SODIUM
     Indication: Prophylaxis against graft versus host disease
     Route: 065
     Dates: start: 20220804, end: 20220830
  12. CYCLOPHOSPHAMIDE [Suspect]
     Active Substance: CYCLOPHOSPHAMIDE
     Indication: Diffuse large B-cell lymphoma
     Route: 065
     Dates: start: 20220804, end: 20220830
  13. CYCLOPHOSPHAMIDE\DOXORUBICIN\PREDNISONE\VINCRISTINE [Suspect]
     Active Substance: CYCLOPHOSPHAMIDE\DOXORUBICIN\PREDNISONE\VINCRISTINE
     Indication: Diffuse large B-cell lymphoma
     Route: 065
     Dates: start: 20210301, end: 20210901
  14. LAPINE T-LYMPHOCYTE IMMUNE GLOBULIN [Suspect]
     Active Substance: LAPINE T-LYMPHOCYTE IMMUNE GLOBULIN
     Indication: Prophylaxis against graft versus host disease
     Route: 065
     Dates: start: 20220804, end: 20220830

REACTIONS (4)
  - Malignant neoplasm progression [Unknown]
  - Cytomegalovirus infection reactivation [Recovering/Resolving]
  - Varicella zoster virus infection [Recovered/Resolved]
  - Off label use [Unknown]

NARRATIVE: CASE EVENT DATE: 20220928
